FAERS Safety Report 6398275-5 (Version None)
Quarter: 2009Q4

REPORT INFORMATION
  Report Type: 
  Country: None (occurrence: None)
  Receive Date: 20091013
  Receipt Date: 20091008
  Transmission Date: 20100525
  Serious: Yes (Death, Other)
  Sender: FDA-Public Use
  Company Number: JP-AVENTIS-200911017JP

PATIENT
  Age: 85 Year
  Sex: Male
  Weight: 58.1 kg

DRUGS (12)
  1. DOCETAXEL HYDRATE [Suspect]
     Route: 041
     Dates: start: 20080428, end: 20080428
  2. PREDNISOLONE [Suspect]
     Dosage: DOSE: 2 TABLETS
     Route: 048
     Dates: start: 20080331
  3. LEUPLIN [Concomitant]
     Dates: start: 20060301
  4. CASODEX [Concomitant]
     Dates: start: 20060301, end: 20080327
  5. HARNAL [Concomitant]
     Dates: start: 20060301
  6. CODEINE PHOSPHATE [Concomitant]
     Dates: start: 20080327
  7. GASTER [Concomitant]
     Dosage: DOSE: 1 TABLET
     Route: 048
     Dates: start: 20080327
  8. DEXART [Concomitant]
     Dates: start: 20080326
  9. MAGMITT [Concomitant]
     Dosage: DOSE: 6 TABLETS
     Route: 048
     Dates: start: 20080404, end: 20080504
  10. GRAN [Concomitant]
     Dates: start: 20080408, end: 20080410
  11. NORVASC [Concomitant]
     Dates: start: 20060101
  12. ZOMETA [Concomitant]

REACTIONS (2)
  - ACUTE RESPIRATORY DISTRESS SYNDROME [None]
  - NEUTROPHIL COUNT DECREASED [None]
